FAERS Safety Report 7671927-2 (Version None)
Quarter: 2011Q3

REPORT INFORMATION
  Report Type: 
  Country: None (occurrence: None)
  Receive Date: 20110809
  Receipt Date: 20110617
  Transmission Date: 20111222
  Serious: Yes (Other)
  Sender: FDA-Public Use
  Company Number: CA-GLAXOSMITHKLINE-A0931785A

PATIENT
  Sex: Male
  Weight: 70 kg

DRUGS (6)
  1. SPIRIVA [Suspect]
     Indication: PRODUCT USED FOR UNKNOWN INDICATION
     Route: 065
  2. PRILOSEC [Concomitant]
     Indication: GASTROOESOPHAGEAL REFLUX DISEASE
  3. ADVAIR DISKUS 100/50 [Suspect]
     Indication: CHRONIC OBSTRUCTIVE PULMONARY DISEASE
     Dosage: 1PUFF PER DAY
     Route: 055
     Dates: start: 20090801
  4. ALTACE [Concomitant]
     Dosage: 2.5MG PER DAY
     Route: 065
  5. ROLAIDS [Concomitant]
  6. SIERRASIL [Suspect]
     Indication: ARTHRALGIA
     Route: 065

REACTIONS (11)
  - PAIN IN EXTREMITY [None]
  - NECK PAIN [None]
  - MOVEMENT DISORDER [None]
  - MUSCULOSKELETAL STIFFNESS [None]
  - DRUG INEFFECTIVE [None]
  - DYSPNOEA [None]
  - INSOMNIA [None]
  - MUSCULOSKELETAL PAIN [None]
  - ARTHRALGIA [None]
  - ARTHRITIS [None]
  - PNEUMONIA [None]
